FAERS Safety Report 8489065-8 (Version None)
Quarter: 2012Q2

REPORT INFORMATION
  Report Type: 
  Country: None (occurrence: None)
  Receive Date: 20120626
  Receipt Date: 20120614
  Transmission Date: 20120825
  Serious: Yes (Hospitalization, Other)
  Sender: FDA-Public Use
  Company Number: 2012SP022459

PATIENT
  Age: 57 Year
  Sex: Male
  Weight: 61 kg

DRUGS (18)
  1. KETOPROFEN [Concomitant]
  2. REBETOL [Suspect]
     Indication: HEPATITIS C
     Dosage: 600;200 MG, QD, PO
     Route: 048
     Dates: start: 20120312
  3. REBETOL [Suspect]
     Indication: HEPATITIS C
     Dosage: 600;200 MG, QD, PO
     Route: 048
     Dates: start: 20120301, end: 20120311
  4. METFRORMIN HYDROCHLORIDE [Concomitant]
  5. TALION [Concomitant]
  6. DICLOFENAC SODIUM [Concomitant]
  7. LENDORMIN D [Concomitant]
  8. MAGMITT [Concomitant]
  9. ETODOLAC [Concomitant]
  10. TELAVIC [Suspect]
     Indication: HEPATITIS C
     Dosage: 2250;1500;1000 MG, QD, PO
     Route: 048
     Dates: start: 20120511, end: 20120517
  11. TELAVIC [Suspect]
     Indication: HEPATITIS C
     Dosage: 2250;1500;1000 MG, QD, PO
     Route: 048
     Dates: start: 20120518
  12. TELAVIC [Suspect]
     Indication: HEPATITIS C
     Dosage: 2250;1500;1000 MG, QD, PO
     Route: 048
     Dates: start: 20120405, end: 20120510
  13. TELAVIC [Suspect]
     Indication: HEPATITIS C
     Dosage: 2250;1500;1000 MG, QD, PO
     Route: 048
     Dates: start: 20120301, end: 20120404
  14. LENDORMIN D [Concomitant]
  15. PEG-INTRON [Suspect]
     Indication: HEPATITIS C
     Dosage: 1.5;1.2 MCG/KG, QW, SC
     Route: 058
     Dates: start: 20120426
  16. PEG-INTRON [Suspect]
     Indication: HEPATITIS C
     Dosage: 1.5;1.2 MCG/KG, QW, SC
     Route: 058
     Dates: start: 20120301, end: 20120425
  17. ACETAMINOPHEN [Concomitant]
  18. PRIMPERAN TAB [Concomitant]

REACTIONS (13)
  - BLOOD CREATININE INCREASED [None]
  - DECREASED APPETITE [None]
  - HAEMOGLOBIN DECREASED [None]
  - PRURITUS [None]
  - NOCTURIA [None]
  - BLOOD PRESSURE DECREASED [None]
  - INSOMNIA [None]
  - ERYTHEMA [None]
  - CONSTIPATION [None]
  - GASTRIC ULCER [None]
  - LOSS OF CONSCIOUSNESS [None]
  - SWELLING [None]
  - ERYTHEMA MULTIFORME [None]
